FAERS Safety Report 7690688-4 (Version None)
Quarter: 2011Q3

REPORT INFORMATION
  Report Type: 
  Country: None (occurrence: None)
  Receive Date: 20110818
  Receipt Date: 20110805
  Transmission Date: 20111222
  Serious: Yes (Death, Hospitalization)
  Sender: FDA-Public Use
  Company Number: FR-SANOFI-AVENTIS-2011SA050185

PATIENT
  Age: 60 Year
  Sex: Male

DRUGS (3)
  1. ARCOXIA [Concomitant]
     Route: 048
     Dates: start: 20110310
  2. ETANERCEPT [Suspect]
     Route: 051
     Dates: start: 20100421
  3. RIFAMPIN AND ISONIAZID [Suspect]
     Indication: PROPHYLAXIS
     Route: 048
     Dates: start: 20110317

REACTIONS (3)
  - ACUTE ENDOCARDITIS [None]
  - ENCEPHALITIS BRAIN STEM [None]
  - SEPSIS [None]
